FAERS Safety Report 4723791-9 (Version None)
Quarter: 2005Q3

REPORT INFORMATION
  Report Type: 
  Country: None (occurrence: None)
  Receive Date: 20050725
  Receipt Date: 20050616
  Transmission Date: 20060218
  Serious: Yes (Other)
  Sender: FDA-Public Use
  Company Number: PHNU2005DE02290

PATIENT
  Sex: Female

DRUGS (2)
  1. IBUPROFEN [Concomitant]
     Indication: MIGRAINE
  2. TIMOX [Suspect]
     Indication: TEMPORAL LOBE EPILEPSY
     Dosage: 900 MG/D
     Route: 048
     Dates: start: 20030101

REACTIONS (2)
  - COLITIS ULCERATIVE [None]
  - GASTROINTESTINAL HAEMORRHAGE [None]
